FAERS Safety Report 24116318 (Version 1)
Quarter: 2024Q3

REPORT INFORMATION
  Report Type: Report from Study
  Country: US (occurrence: None)
  Receive Date: 20240722
  Receipt Date: 20240722
  Transmission Date: 20241017
  Serious: Yes (Hospitalization)
  Sender: ASTRAZENECA
  Company Number: 2020SF63454

PATIENT
  Sex: Male

DRUGS (1)
  1. BRILINTA [Suspect]
     Active Substance: TICAGRELOR
     Route: 048
     Dates: start: 20201110

REACTIONS (4)
  - Viral infection [Recovered/Resolved]
  - Gallbladder disorder [Unknown]
  - Hepatic enzyme increased [Unknown]
  - Renal disorder [Unknown]
